FAERS Safety Report 5968933-2 (Version None)
Quarter: 2008Q4

REPORT INFORMATION
  Report Type: 
  Country: None (occurrence: None)
  Receive Date: 20081125
  Receipt Date: 20081125
  Transmission Date: 20090506
  Serious: No
  Sender: FDA-Public Use
  Company Number: None

PATIENT
  Age: 68 Year
  Sex: Female
  Weight: 83.9154 kg

DRUGS (1)
  1. RECLAST [Suspect]
     Indication: OSTEOPOROSIS

REACTIONS (7)
  - BLOOD URINE [None]
  - FREQUENT BOWEL MOVEMENTS [None]
  - HAEMATOCHEZIA [None]
  - HEADACHE [None]
  - MYALGIA [None]
  - POLLAKIURIA [None]
  - PYREXIA [None]
